FAERS Safety Report 17052972 (Version 1)
Quarter: 2019Q4

REPORT INFORMATION
  Report Type: Spontaneous
  Country: JP (occurrence: JP)
  Receive Date: 20191120
  Receipt Date: 20191120
  Transmission Date: 20200122
  Serious: Yes (Hospitalization)
  Sender: FDA-Public Use
  Company Number: JP-ELI_LILLY_AND_COMPANY-JP201911003544

PATIENT
  Age: 69 Year
  Sex: Female

DRUGS (1)
  1. OLANZAPINE. [Suspect]
     Active Substance: OLANZAPINE
     Indication: DEPRESSION
     Dosage: 5 MG, DAILY
     Route: 048

REACTIONS (2)
  - Meningitis listeria [Recovered/Resolved]
  - Hyperglycaemia [Recovered/Resolved]
